FAERS Safety Report 16124607 (Version 1)
Quarter: 2019Q1

REPORT INFORMATION
  Report Type: Report from Study
  Country: JP (occurrence: JP)
  Receive Date: 20190327
  Receipt Date: 20190327
  Transmission Date: 20190418
  Serious: Yes (Death, Other)
  Sender: FDA-Public Use
  Company Number: JP-INCYTE CORPORATION-2019IN002643

PATIENT

DRUGS (1)
  1. JAKAVI [Suspect]
     Active Substance: RUXOLITINIB
     Indication: POLYCYTHAEMIA VERA
     Dosage: 5 MG, BID
     Route: 048
     Dates: start: 20160215, end: 20181205

REACTIONS (3)
  - Hepatic failure [Fatal]
  - Blood alkaline phosphatase increased [Unknown]
  - Renal failure [Unknown]

NARRATIVE: CASE EVENT DATE: 20181211
